FAERS Safety Report 4934274-5 (Version None)
Quarter: 2006Q1

REPORT INFORMATION
  Report Type: 
  Country: None (occurrence: None)
  Receive Date: 20060307
  Receipt Date: 20060228
  Transmission Date: 20060701
  Serious: Yes (Death)
  Sender: FDA-Public Use
  Company Number: JP-ROCHE-438599

PATIENT
  Age: 63 Year
  Sex: Female

DRUGS (1)
  1. VESANOID [Suspect]
     Indication: ACUTE PROMYELOCYTIC LEUKAEMIA
     Route: 048
     Dates: start: 20060206, end: 20060214

REACTIONS (1)
  - RETINOIC ACID SYNDROME [None]
